FAERS Safety Report 18248057 (Version 1)
Quarter: 2020Q3

REPORT INFORMATION
  Report Type: Spontaneous
  Country: US (occurrence: US)
  Receive Date: 20200909
  Receipt Date: 20200909
  Transmission Date: 20201103
  Serious: No
  Sender: FDA-Public Use
  Company Number: US-PERRIGO-20US008729

PATIENT
  Age: 52 Year
  Sex: Female
  Weight: 65.76 kg

DRUGS (3)
  1. ALBUTEROL SULFATE. [Suspect]
     Active Substance: ALBUTEROL SULFATE
     Indication: ASTHMA
     Dosage: 180 MCG, Q4HR
     Route: 055
     Dates: start: 202005, end: 202005
  2. ALBUTEROL SULFATE. [Suspect]
     Active Substance: ALBUTEROL SULFATE
     Dosage: 3 TO 4 PUFFS Q4HR
     Route: 055
     Dates: start: 202005, end: 202005
  3. ANALGESICS [Suspect]
     Active Substance: UNSPECIFIED INGREDIENT
     Indication: PAIN
     Dosage: UNK
     Route: 065

REACTIONS (3)
  - Incorrect dose administered [Recovered/Resolved]
  - Device delivery system issue [Recovered/Resolved]
  - Drug ineffective [Unknown]

NARRATIVE: CASE EVENT DATE: 202005
